FAERS Safety Report 5713724-0 (Version None)
Quarter: 2008Q2

REPORT INFORMATION
  Report Type: 
  Country: None (occurrence: None)
  Receive Date: 20080418
  Receipt Date: 20080403
  Transmission Date: 20081010
  Serious: Yes (Hospitalization)
  Sender: FDA-Public Use
  Company Number: 2008JP001433

PATIENT
  Age: 42 Year
  Sex: Female
  Weight: 47 kg

DRUGS (7)
  1. TACROLIMUS [Suspect]
     Indication: LUPUS NEPHRITIS
     Dosage: 3 MG, ORAL; 1 MG, ORAL; 2 MG, ORAL
     Route: 048
     Dates: start: 20070523, end: 20070619
  2. TACROLIMUS [Suspect]
     Indication: LUPUS NEPHRITIS
     Dosage: 3 MG, ORAL; 1 MG, ORAL; 2 MG, ORAL
     Route: 048
     Dates: start: 20070620, end: 20070717
  3. TACROLIMUS [Suspect]
     Indication: LUPUS NEPHRITIS
     Dosage: 3 MG, ORAL; 1 MG, ORAL; 2 MG, ORAL
     Route: 048
     Dates: start: 20070718
  4. PREDNISOLONE [Suspect]
     Indication: LUPUS NEPHRITIS
     Dosage: 10 MG, ORAL
     Route: 048
  5. ONEALFA (ALFACALCIDOL) PER ORAL NOS [Concomitant]
  6. BUFFERIN (ALUMINIUM GLYCINATE) PER ORAL NOS [Concomitant]
  7. PERSANTIN (DIPYRIDAMOLE) PER ORAL NOS [Concomitant]

REACTIONS (5)
  - ENDOCARDITIS [None]
  - PALPITATIONS [None]
  - PNEUMONIA [None]
  - PYREXIA [None]
  - TRICUSPID VALVE DISEASE [None]
